FAERS Safety Report 18325074 (Version 2)
Quarter: 2020Q4

REPORT INFORMATION
  Report Type: Spontaneous
  Country: US (occurrence: US)
  Receive Date: 20200928
  Receipt Date: 20201119
  Transmission Date: 20210113
  Serious: No
  Sender: FDA-Public Use
  Company Number: US-AMGEN-USASP2020155079

PATIENT
  Age: 62 Year
  Sex: Female

DRUGS (16)
  1. ESTRACE [Concomitant]
     Active Substance: ESTRADIOL
     Dosage: 0.5 MILLIGRAM, QD
     Route: 048
  2. NITROSTAT [Concomitant]
     Active Substance: NITROGLYCERIN
     Dosage: 0.4 MILLIGRAM, DOSE: PLACE 1 TABLET UNDER THE TONGUE EVERY 5 MINUTES AS NECESSARY
  3. TENORMIN [Concomitant]
     Active Substance: ATENOLOL
     Dosage: 25 MILLIGRAM, QD, DOSE: 1/2 TABLET
     Route: 048
  4. SUBOXONE [Concomitant]
     Active Substance: BUPRENORPHINE HYDROCHLORIDE\NALOXONE HYDROCHLORIDE
     Dosage: UNK, DOSE: 8 - 2 MILLIGRAM
  5. IMDUR [Concomitant]
     Active Substance: ISOSORBIDE MONONITRATE
     Dosage: 60 MILLIGRAM, QD, DOSE: 2 TABLETS
     Route: 048
  6. PRILOSEC [Concomitant]
     Active Substance: OMEPRAZOLE MAGNESIUM
     Dosage: 40 MILLIGRAM, QD
     Route: 048
  7. HYDREA [Concomitant]
     Active Substance: HYDROXYUREA
     Dosage: 500 MICROGRAM, QD
     Route: 048
  8. UBIQUINOL [Concomitant]
     Active Substance: UBIQUINOL
     Dosage: 200 MILLIGRAM
     Route: 048
  9. SYNTHROID [Concomitant]
     Active Substance: LEVOTHYROXINE SODIUM
     Dosage: 100 MICROGRAM, QD
     Route: 048
  10. VENTOLIN [Concomitant]
     Active Substance: ALBUTEROL SULFATE
     Dosage: 90 MICROGRAM, DOSAGE: INHALE 2 PUFFS BY RNOUTH EVERY 8 HOURS AS NECESSARY
  11. VITAMIN D3 [Concomitant]
     Active Substance: CHOLECALCIFEROL
     Dosage: 75 MICROGRAM, QD
     Route: 048
  12. XARELTO [Concomitant]
     Active Substance: RIVAROXABAN
     Dosage: 15 MILLIGRAM, DOSE: WHEN TRAVELING
  13. ASPIRIN [ACETYLSALICYLIC ACID] [Concomitant]
     Active Substance: ASPIRIN
     Dosage: 325 MILLIGRAM, QD
     Route: 048
  14. BIOTIN [Concomitant]
     Active Substance: BIOTIN
     Dosage: 5000 MICROGRAM
     Route: 048
  15. REPATHA [Suspect]
     Active Substance: EVOLOCUMAB
     Indication: HYPERLIPIDAEMIA
     Dosage: 140 MILLIGRAM, Q2WK
     Route: 065
     Dates: start: 202005, end: 2020
  16. ALDACTONE [Concomitant]
     Active Substance: SPIRONOLACTONE
     Dosage: 25 MILLIGRAM, QD
     Route: 048

REACTIONS (2)
  - Erythema [Unknown]
  - Oedema peripheral [Not Recovered/Not Resolved]

NARRATIVE: CASE EVENT DATE: 202005
